FAERS Safety Report 8105227-3 (Version None)
Quarter: 2012Q1

REPORT INFORMATION
  Report Type: 
  Country: None (occurrence: None)
  Receive Date: 20120201
  Receipt Date: 20120119
  Transmission Date: 20120608
  Serious: Yes (Hospitalization)
  Sender: FDA-Public Use
  Company Number: FR-SANOFI-AVENTIS-2012SA003969

PATIENT
  Age: 36 Year
  Sex: Female

DRUGS (5)
  1. ALCOHOL [Suspect]
     Indication: SUICIDE ATTEMPT
     Dosage: DOSE:10 UNIT(S)
     Route: 048
     Dates: start: 20110821, end: 20110821
  2. PREVISCAN [Concomitant]
     Indication: SUICIDE ATTEMPT
     Route: 048
     Dates: start: 20110821, end: 20110821
  3. ATORVASTATIN [Concomitant]
     Indication: SUICIDE ATTEMPT
     Route: 048
     Dates: start: 20110821, end: 20110821
  4. ZOLPIDEM [Suspect]
     Indication: SUICIDE ATTEMPT
     Route: 048
     Dates: start: 20110821, end: 20110821
  5. ACETAMINOPHEN [Suspect]
     Indication: SUICIDE ATTEMPT
     Route: 048
     Dates: start: 20110821, end: 20110821

REACTIONS (2)
  - DRUG LEVEL INCREASED [None]
  - CYTOLYTIC HEPATITIS [None]
